FAERS Safety Report 10420460 (Version 1)
Quarter: 2014Q2

REPORT INFORMATION
  Report Type: Spontaneous
  Country: US (occurrence: None)
  Receive Date: 20140618
  Receipt Date: 20140618
  Transmission Date: 20141212
  Serious: Yes (Hospitalization)
  Sender: FDA-Public Use
  Company Number: 096687

PATIENT
  Sex: Male

DRUGS (6)
  1. LACOSAMIDE [Suspect]
     Dosage: 200 MG, 100 MG AT 8AM; 100 MG AT 6PM
  2. KEPPRA [Suspect]
     Indication: CONVULSION
     Dosage: 1750 MG, 750 MG AT 8AM; 1000 MG AT 6PM
  3. KLONOPIN [Concomitant]
  4. TRILEPTAL [Concomitant]
  5. LANTUS [Concomitant]
  6. HUMALOG [Concomitant]

REACTIONS (2)
  - Convulsion [None]
  - Adverse drug reaction [None]
